FAERS Safety Report 5389599-9 (Version None)
Quarter: 2007Q3

REPORT INFORMATION
  Report Type: 
  Country: None (occurrence: None)
  Receive Date: 20070717
  Receipt Date: 20070706
  Transmission Date: 20080115
  Serious: Yes (Hospitalization)
  Sender: FDA-Public Use
  Company Number: PH-PFIZER INC-2007055823

PATIENT
  Age: 21 Year
  Sex: Male

DRUGS (1)
  1. UNASYN [Suspect]
     Indication: ILEOSTOMY
     Route: 042

REACTIONS (2)
  - DRUG INEFFECTIVE [None]
  - PURULENT DISCHARGE [None]
